FAERS Safety Report 20558095 (Version 1)
Quarter: 2022Q1

REPORT INFORMATION
  Report Type: Report from Study
  Country: US (occurrence: US)
  Receive Date: 20220307
  Receipt Date: 20220307
  Transmission Date: 20220423
  Serious: Yes (Hospitalization)
  Sender: FDA-Public Use
  Company Number: US-ALNYLAM PHARMACEUTICALS, INC.-ALN-2022-000808

PATIENT

DRUGS (1)
  1. GIVLAARI [Suspect]
     Active Substance: GIVOSIRAN SODIUM
     Indication: Product used for unknown indication
     Dosage: 189 MILLIGRAM PER MILLILITRE, MONTHLY
     Route: 058
     Dates: start: 20210217

REACTIONS (2)
  - Porphyria acute [Unknown]
  - Stress [Unknown]
